FAERS Safety Report 4586248-4 (Version None)
Quarter: 2005Q1

REPORT INFORMATION
  Report Type: 
  Country: None (occurrence: None)
  Receive Date: 20050125
  Receipt Date: 20041115
  Transmission Date: 20050727
  Serious: No
  Sender: FDA-Public Use
  Company Number: US-0411108245

PATIENT
  Sex: Female

DRUGS (1)
  1. FORTEO [Suspect]
     Indication: OSTEOPOROSIS
     Dosage: 20 UG DAY
     Dates: start: 20041023

REACTIONS (4)
  - ABDOMINAL PAIN LOWER [None]
  - BLOOD URINE [None]
  - FEELING JITTERY [None]
  - URINARY TRACT INFECTION [None]
